FAERS Safety Report 6171632-8 (Version None)
Quarter: 2009Q2

REPORT INFORMATION
  Report Type: 
  Country: None (occurrence: None)
  Receive Date: 20090428
  Receipt Date: 20090428
  Transmission Date: 20091009
  Serious: Yes (Other)
  Sender: FDA-Public Use
  Company Number: None

PATIENT
  Age: 8 Year
  Sex: Female
  Weight: 31.7518 kg

DRUGS (1)
  1. FLUTICASONE PROPIONATE [Suspect]
     Indication: NASAL DISORDER
     Dosage: 1 SPRAY EACH NOSTRIL 1X PER DAY NASAL
     Route: 045
     Dates: start: 20070201, end: 20090426

REACTIONS (3)
  - CATARACT [None]
  - LABORATORY TEST ABNORMAL [None]
  - VISUAL IMPAIRMENT [None]
